FAERS Safety Report 18196088 (Version 2)
Quarter: 2020Q3

REPORT INFORMATION
  Report Type: Spontaneous
  Country: US (occurrence: US)
  Receive Date: 20200826
  Receipt Date: 20200907
  Transmission Date: 20201103
  Serious: Yes (Hospitalization)
  Sender: FDA-Public Use
  Company Number: US-ROCHE-2665013

PATIENT
  Age: 70 Year
  Sex: Female
  Weight: 70.37 kg

DRUGS (6)
  1. CELLCEPT [Suspect]
     Active Substance: MYCOPHENOLATE MOFETIL\MYCOPHENOLATE MOFETIL HYDROCHLORIDE
     Indication: PRODUCT USED FOR UNKNOWN INDICATION
     Route: 065
     Dates: start: 20111110
  2. PANTOPRAZOLE [Suspect]
     Active Substance: PANTOPRAZOLE
     Indication: PRODUCT USED FOR UNKNOWN INDICATION
     Route: 065
     Dates: start: 20200803
  3. ADCIRCA [Concomitant]
     Active Substance: TADALAFIL
  4. SILDENAFIL CITRATE. [Concomitant]
     Active Substance: SILDENAFIL CITRATE
  5. OFEV [Concomitant]
     Active Substance: NINTEDANIB
  6. TYVASO [Suspect]
     Active Substance: TREPROSTINIL
     Indication: PULMONARY ARTERIAL HYPERTENSION
     Dosage: 18?54  MICROGRAM
     Route: 065
     Dates: start: 20111110

REACTIONS (4)
  - Lactose intolerance [Unknown]
  - Loss of consciousness [Unknown]
  - Drug interaction [Unknown]
  - Dehydration [Unknown]

NARRATIVE: CASE EVENT DATE: 20200807
